FAERS Safety Report 16717391 (Version 5)
Quarter: 2019Q4

REPORT INFORMATION
  Report Type: Spontaneous
  Country: US (occurrence: US)
  Receive Date: 20190819
  Receipt Date: 20191230
  Transmission Date: 20200122
  Serious: No
  Sender: FDA-Public Use
  Company Number: US-JNJFOC-20190819351

PATIENT
  Age: 42 Year
  Sex: Male

DRUGS (1)
  1. RISPERDAL CONSTA [Suspect]
     Active Substance: RISPERIDONE
     Indication: SCHIZOPHRENIA
     Route: 030
     Dates: start: 201901

REACTIONS (5)
  - Product dose omission [Unknown]
  - Device issue [Unknown]
  - Drug hypersensitivity [Unknown]
  - Product complaint [Unknown]
  - Product label issue [Unknown]

NARRATIVE: CASE EVENT DATE: 20190814
